FAERS Safety Report 19722620 (Version 2)
Quarter: 2021Q4

REPORT INFORMATION
  Report Type: Report from Study
  Country: DE (occurrence: DE)
  Receive Date: 20210819
  Receipt Date: 20211013
  Transmission Date: 20220303
  Serious: No
  Sender: FDA-Public Use
  Company Number: DE-BIOGEN-2021BI01038081

PATIENT
  Age: 0 Day
  Sex: Female

DRUGS (3)
  1. PLEGRIDY [Suspect]
     Active Substance: PEGINTERFERON BETA-1A
     Indication: Maternal exposure timing unspecified
     Route: 064
     Dates: start: 20150102, end: 20160325
  2. Femibion [Concomitant]
     Indication: Maternal exposure timing unspecified
     Dosage: DAILY, DOSE OF ADMIN UNKNOWN
     Route: 065
     Dates: start: 201601, end: 201709
  3. VITAMIN K [Concomitant]
     Active Substance: PHYTONADIONE
     Indication: Prophylaxis
     Route: 048

REACTIONS (3)
  - Naevus flammeus [Recovered/Resolved]
  - Pain in extremity [Not Recovered/Not Resolved]
  - Foetal exposure during pregnancy [Recovered/Resolved]

NARRATIVE: CASE EVENT DATE: 20161205
